FAERS Safety Report 22102852 (Version 1)
Quarter: 2023Q1

REPORT INFORMATION
  Report Type: Spontaneous
  Country: AU (occurrence: AU)
  Receive Date: 20230316
  Receipt Date: 20230316
  Transmission Date: 20230418
  Serious: Yes (Disabling)
  Sender: FDA-Public Use
  Company Number: AU-ELI_LILLY_AND_COMPANY-AU202303002842

PATIENT
  Age: 48 Year
  Sex: Female

DRUGS (16)
  1. GALCANEZUMAB [Suspect]
     Active Substance: GALCANEZUMAB
     Indication: Migraine
     Dosage: UNK, MONTHLY (1/M)
     Route: 065
     Dates: start: 202106
  2. QUETIAPINE [Suspect]
     Active Substance: QUETIAPINE
     Indication: Anxiety
     Dosage: 25 MG, TID, NIGHTLY
     Route: 065
     Dates: start: 201811
  3. ESTRADIOL [Suspect]
     Active Substance: ESTRADIOL
     Indication: Menopause
     Dosage: 100 UG, OTHER, ROTATION EVERY THREE DAYS
     Route: 065
     Dates: start: 20191010
  4. PROMETRIUM [Suspect]
     Active Substance: PROGESTERONE
     Indication: Menopause
     Dosage: 100 MG, DAILY
     Route: 067
     Dates: start: 20191028
  5. CITALOPRAM HYDROCHLORIDE [Suspect]
     Active Substance: CITALOPRAM HYDROCHLORIDE
     Indication: Depression
     Dosage: 40 MG, DAILY, NIGHTLY
     Route: 048
     Dates: start: 201811
  6. PREGABALIN [Suspect]
     Active Substance: PREGABALIN
     Indication: Nerve compression
     Dosage: 75 MG, BID, NIGHTLY
     Route: 065
     Dates: start: 202107
  7. AMITRIPTYLINE [Suspect]
     Active Substance: AMITRIPTYLINE
     Indication: Migraine
     Dosage: 25 MG, DAILY, NIGHTLY
     Route: 065
     Dates: start: 20220120
  8. AMITRIPTYLINE [Suspect]
     Active Substance: AMITRIPTYLINE
     Indication: Pain
  9. TAPENTADOL [Suspect]
     Active Substance: TAPENTADOL
     Indication: Migraine
     Dosage: 50 MG, PRN
     Route: 065
     Dates: start: 2018
  10. TAPENTADOL [Suspect]
     Active Substance: TAPENTADOL
     Indication: Pain
  11. ZOLMITRIPTAN [Suspect]
     Active Substance: ZOLMITRIPTAN
     Indication: Migraine
     Dosage: 2.5 MG, PRN
     Route: 065
     Dates: start: 2019
  12. ONDANSETRON [Suspect]
     Active Substance: ONDANSETRON
     Indication: Migraine
     Dosage: 8 MG, PRN
     Route: 065
     Dates: start: 2019
  13. ONDANSETRON [Suspect]
     Active Substance: ONDANSETRON
     Indication: Irritable bowel syndrome
  14. RABEPRAZOLE SODIUM [Suspect]
     Active Substance: RABEPRAZOLE SODIUM
     Indication: Gastrooesophageal reflux disease
     Dosage: HALF, DAILY
     Route: 065
  15. SIMETHICONE (DIMETHICONE) [Suspect]
     Active Substance: DIMETHICONE
     Indication: Irritable bowel syndrome
     Dosage: UNK, PRN
     Route: 065
  16. BUTYLSCOPOLAMINE BROMIDE [Suspect]
     Active Substance: BUTYLSCOPOLAMINE BROMIDE
     Indication: Irritable bowel syndrome
     Dosage: UNK, UNKNOWN
     Route: 065

REACTIONS (4)
  - Migraine [Unknown]
  - Hyperhidrosis [Unknown]
  - Hot flush [Unknown]
  - Breast tenderness [Unknown]

NARRATIVE: CASE EVENT DATE: 20220101
